FAERS Safety Report 14412731 (Version 1)
Quarter: 2018Q1

REPORT INFORMATION
  Report Type: Spontaneous
  Country: US (occurrence: US)
  Receive Date: 20180119
  Receipt Date: 20180119
  Transmission Date: 20180509
  Serious: No
  Sender: FDA-Public Use
  Company Number: US-SUNOVION-2018SUN000038

PATIENT
  Sex: Female

DRUGS (1)
  1. LATUDA [Suspect]
     Active Substance: LURASIDONE HYDROCHLORIDE
     Route: 048

REACTIONS (6)
  - Heart rate increased [Unknown]
  - Apathy [Unknown]
  - Depression [Unknown]
  - Bradyphrenia [Unknown]
  - Lethargy [Unknown]
  - Blood glucose increased [Unknown]
